FAERS Safety Report 6831235-6 (Version None)
Quarter: 2010Q3

REPORT INFORMATION
  Report Type: 
  Country: None (occurrence: None)
  Receive Date: 20100712
  Receipt Date: 20100707
  Transmission Date: 20110219
  Serious: Yes (Hospitalization)
  Sender: FDA-Public Use
  Company Number: US-BRISTOL-MYERS SQUIBB COMPANY-15166440

PATIENT
  Age: 63 Year
  Sex: Male
  Weight: 116 kg

DRUGS (6)
  1. ONGLYZA [Suspect]
     Indication: TYPE 2 DIABETES MELLITUS
     Route: 048
     Dates: start: 20100601
  2. LISINOPRIL [Concomitant]
  3. PRAVACHOL [Concomitant]
  4. PRISTIQ [Concomitant]
     Dosage: NIGHTLY
  5. ANDROGEL [Concomitant]
     Dosage: 4 DF = 4 PUMPS ANDROGEN 1%
     Route: 061
  6. VICODIN [Concomitant]
     Dosage: 1 DF = 5/500MG

REACTIONS (1)
  - PULMONARY EMBOLISM [None]
